FAERS Safety Report 4380074-7 (Version None)
Quarter: 2004Q2

REPORT INFORMATION
  Report Type: 
  Country: None (occurrence: None)
  Receive Date: 20040614
  Receipt Date: 20040526
  Transmission Date: 20050107
  Serious: Yes (Hospitalization)
  Sender: FDA-Public Use
  Company Number: DSA_23695_2003

PATIENT
  Age: 81 Year
  Sex: Female

DRUGS (5)
  1. DILTIAZEM HCL [Suspect]
     Dosage: 120 MG BID PO
     Route: 048
  2. FONZYLANE [Suspect]
     Dosage: 600 MG Q DAY PO
     Route: 048
     Dates: end: 20031206
  3. DUPHALAC [Concomitant]
  4. KARDEGIC [Concomitant]
  5. LORAZEPAM [Concomitant]

REACTIONS (14)
  - BLOOD CREATINE INCREASED [None]
  - BLOOD PRESSURE DECREASED [None]
  - BLOOD UREA INCREASED [None]
  - CONVULSION [None]
  - CREATININE RENAL CLEARANCE DECREASED [None]
  - CYANOSIS [None]
  - DEPRESSED LEVEL OF CONSCIOUSNESS [None]
  - ELECTROCARDIOGRAM PR PROLONGATION [None]
  - ELECTROCARDIOGRAM QRS COMPLEX PROLONGED [None]
  - HEART RATE DECREASED [None]
  - HYPERGLYCAEMIA [None]
  - HYPOTONIA [None]
  - MALAISE [None]
  - SYNCOPE VASOVAGAL [None]
